FAERS Safety Report 7476998-4 (Version None)
Quarter: 2011Q2

REPORT INFORMATION
  Report Type: 
  Country: None (occurrence: None)
  Receive Date: 20110512
  Receipt Date: 20110224
  Transmission Date: 20111010
  Serious: No
  Sender: FDA-Public Use
  Company Number: US-BAYER-2011-018432

PATIENT
  Age: 70 Year
  Sex: Male

DRUGS (1)
  1. AVELOX [Suspect]
     Indication: UPPER RESPIRATORY TRACT INFECTION
     Dosage: 400 MG, QD
     Route: 048
     Dates: start: 20110214, end: 20110214

REACTIONS (2)
  - CHOKING SENSATION [None]
  - LACRIMATION INCREASED [None]
